FAERS Safety Report 17922525 (Version 3)
Quarter: 2020Q2

REPORT INFORMATION
  Report Type: Spontaneous
  Country: US (occurrence: US)
  Receive Date: 20200622
  Receipt Date: 20200625
  Transmission Date: 20200714
  Serious: Yes (Hospitalization, Other)
  Sender: FDA-Public Use
  Company Number: US-PFIZER INC-2020239278

PATIENT
  Age: 73 Year
  Sex: Female
  Weight: 106.58 kg

DRUGS (1)
  1. XANAX [Suspect]
     Active Substance: ALPRAZOLAM
     Indication: GRIEF REACTION
     Dosage: 1 MG, 1X/DAY (1 MG DAILY AT BEDTIME BY MOUTH)
     Route: 048
     Dates: start: 201909, end: 20200529

REACTIONS (8)
  - Off label use [Unknown]
  - Drug intolerance [Unknown]
  - Mental disorder [Unknown]
  - Chest discomfort [Unknown]
  - Weight decreased [Unknown]
  - Product use in unapproved indication [Unknown]
  - Middle insomnia [Unknown]
  - Feeling abnormal [Unknown]

NARRATIVE: CASE EVENT DATE: 201909
